FAERS Safety Report 4717353-7 (Version None)
Quarter: 2005Q3

REPORT INFORMATION
  Report Type: 
  Country: None (occurrence: None)
  Receive Date: 20050712
  Receipt Date: 20050502
  Transmission Date: 20060218
  Serious: Yes (Death)
  Sender: FDA-Public Use
  Company Number: PHEH2005US05086

PATIENT
  Age: 61 Year
  Sex: Female

DRUGS (4)
  1. CGP 57148B (IMATINIB) CAPSULE [Suspect]
     Indication: CHRONIC MYELOID LEUKAEMIA
     Dosage: 800 MG, QD, ORAL
     Route: 048
     Dates: start: 20000203, end: 20030131
  2. IDARUBICIN HCL [Concomitant]
  3. CYTARABINE [Concomitant]
  4. ANTHRACYCLINES (NO INGREDIENTS/SUBSTANCES) [Concomitant]

REACTIONS (2)
  - BLAST CRISIS IN MYELOGENOUS LEUKAEMIA [None]
  - DRUG RESISTANCE [None]
